FAERS Safety Report 8976045 (Version 2)
Quarter: 2013Q1

REPORT INFORMATION
  Report Type: Spontaneous
  Country: DE (occurrence: DE)
  Receive Date: 20121220
  Receipt Date: 20130117
  Transmission Date: 20140127
  Serious: Yes (Other)
  Sender: FDA-Public Use
  Company Number: DE-ROCHE-1168714

PATIENT
  Age: 62 Year
  Sex: Female

DRUGS (7)
  1. BONVIVA [Suspect]
     Indication: OSTEOPOROSIS
     Route: 042
     Dates: start: 20050509, end: 20121210
  2. HUMIRA [Concomitant]
     Indication: RHEUMATOID ARTHRITIS
     Route: 058
     Dates: start: 20090917
  3. METHOTREXATE [Concomitant]
     Indication: RHEUMATOID ARTHRITIS
     Route: 048
     Dates: start: 20091217
  4. FOLIC ACID [Concomitant]
     Indication: RHEUMATOID ARTHRITIS
     Route: 048
     Dates: start: 20091217
  5. VIGANTOLETTEN [Concomitant]
     Indication: OSTEOPOROSIS
     Route: 065
     Dates: start: 20100923
  6. L-THYROXIN [Concomitant]
     Route: 065
  7. BISOPROLOL [Concomitant]
     Indication: HYPERTENSION
     Route: 048

REACTIONS (2)
  - Wrong technique in drug usage process [Unknown]
  - Wound [Recovered/Resolved]
